FAERS Safety Report 12799103 (Version 1)
Quarter: 2016Q3

REPORT INFORMATION
  Report Type: Spontaneous
  Country: US (occurrence: US)
  Receive Date: 20160930
  Receipt Date: 20160930
  Transmission Date: 20161109
  Serious: Yes (Other)
  Sender: FDA-Public Use
  Company Number: US-TEVA-697542USA

PATIENT
  Age: 52 Year
  Sex: Male

DRUGS (11)
  1. AMPYRA [Concomitant]
     Active Substance: DALFAMPRIDINE
  2. LISINOPRIL. [Concomitant]
     Active Substance: LISINOPRIL
  3. SIMVASTATIN. [Concomitant]
     Active Substance: SIMVASTATIN
  4. ETODOLAC. [Concomitant]
     Active Substance: ETODOLAC
  5. GABAPENTIN. [Concomitant]
     Active Substance: GABAPENTIN
  6. METFORMIN [Concomitant]
     Active Substance: METFORMIN HYDROCHLORIDE
  7. ASPIRIN. [Concomitant]
     Active Substance: ASPIRIN
  8. COPAXONE [Suspect]
     Active Substance: GLATIRAMER ACETATE
     Indication: MULTIPLE SCLEROSIS
     Route: 058
     Dates: start: 20140710
  9. FLUOXETINE [Concomitant]
     Active Substance: FLUOXETINE HYDROCHLORIDE
  10. GLIPIZIDE. [Concomitant]
     Active Substance: GLIPIZIDE
  11. VITAMIN D [Concomitant]
     Active Substance: CHOLECALCIFEROL

REACTIONS (1)
  - Multiple sclerosis relapse [Unknown]

NARRATIVE: CASE EVENT DATE: 20160916
